FAERS Safety Report 8434340-6 (Version None)
Quarter: 2012Q2

REPORT INFORMATION
  Report Type: 
  Country: None (occurrence: None)
  Receive Date: 20120613
  Receipt Date: 20120607
  Transmission Date: 20120825
  Serious: Yes (Hospitalization)
  Sender: FDA-Public Use
  Company Number: GB-MERCK-1206USA01548

PATIENT
  Age: 76 Year
  Sex: Male

DRUGS (5)
  1. CINNARIZINE [Concomitant]
     Route: 065
  2. DICLOFENAC [Suspect]
     Indication: OSTEOARTHRITIS
     Route: 048
  3. ZOCOR [Suspect]
     Indication: HYPERCHOLESTEROLAEMIA
     Route: 048
  4. GLUCOSAMINE [Concomitant]
     Route: 065
  5. SILDENAFIL CITRATE [Concomitant]
     Route: 065

REACTIONS (5)
  - RENAL FAILURE ACUTE [None]
  - BLOOD CREATININE INCREASED [None]
  - RHABDOMYOLYSIS [None]
  - MYOPATHY [None]
  - BLOOD CREATINE PHOSPHOKINASE INCREASED [None]
